FAERS Safety Report 9497328 (Version 3)
Quarter: 2013Q3

REPORT INFORMATION
  Report Type: Report from Study
  Country: US (occurrence: US)
  Receive Date: 20130904
  Receipt Date: 20130925
  Transmission Date: 20140515
  Serious: No
  Sender: FDA-Public Use
  Company Number: US-JNJFOC-20130800025

PATIENT
  Age: 42 Year
  Sex: Male
  Weight: 75.3 kg

DRUGS (2)
  1. DURAGESIC [Suspect]
     Indication: PAIN
     Route: 062
     Dates: start: 20110314
  2. VICOPROFEN [Concomitant]
     Indication: PAIN
     Route: 065

REACTIONS (18)
  - Rash generalised [Recovered/Resolved]
  - Withdrawal syndrome [Unknown]
  - Purulence [Not Recovered/Not Resolved]
  - Drug dose omission [Unknown]
  - Nausea [Unknown]
  - Erythema [Not Recovered/Not Resolved]
  - Product quality issue [Unknown]
  - Psychomotor hyperactivity [Unknown]
  - Insomnia [Unknown]
  - Wrong technique in drug usage process [Unknown]
  - Drug administration error [Unknown]
  - Feeling abnormal [Unknown]
  - Hyperhidrosis [Unknown]
  - Feeling hot [Unknown]
  - Wrong technique in drug usage process [Unknown]
  - Therapeutic response decreased [Unknown]
  - Drug level fluctuating [Unknown]
  - Wrong technique in drug usage process [Unknown]
